FAERS Safety Report 6107161-7 (Version None)
Quarter: 2009Q1

REPORT INFORMATION
  Report Type: 
  Country: None (occurrence: None)
  Receive Date: 20090305
  Receipt Date: 20090305
  Transmission Date: 20090719
  Serious: No
  Sender: FDA-Public Use
  Company Number: None

PATIENT
  Age: 79 Year
  Sex: Female
  Weight: 70.3075 kg

DRUGS (1)
  1. NITROFURANTOIN MACROCRYSTALLINE [Suspect]
     Indication: URINARY TRACT INFECTION
     Dosage: 2 EA DAILY ORAL
     Route: 048
     Dates: start: 20090217

REACTIONS (4)
  - DYSPHAGIA [None]
  - OESOPHAGEAL PAIN [None]
  - SENSATION OF FOREIGN BODY [None]
  - THROAT IRRITATION [None]
